FAERS Safety Report 6443863-0 (Version None)
Quarter: 2009Q4

REPORT INFORMATION
  Report Type: 
  Country: None (occurrence: None)
  Receive Date: 20091113
  Receipt Date: 20091028
  Transmission Date: 20100525
  Serious: Yes (Hospitalization, Other)
  Sender: FDA-Public Use
  Company Number: 426755

PATIENT
  Age: 55 Year
  Sex: Male
  Weight: 72 kg

DRUGS (3)
  1. LEUCOVORIN CALCIUM [Suspect]
     Indication: DRUG USE FOR UNKNOWN INDICATION
     Dosage: 724 MG, INTRAVENOUS
     Route: 042
  2. FLUOROURACIL INJ [Suspect]
     Indication: DRUG USE FOR UNKNOWN INDICATION
     Dosage: 724 MG, INTRAVENOUS BOLUS; 4300 MG INTRAVENOUS DRIP
  3. ELOXATIN [Suspect]
     Indication: DRUG USE FOR UNKNOWN INDICATION
     Dosage: 154 MG, INTRAVENOUS
     Route: 042

REACTIONS (2)
  - ARTERIOSPASM CORONARY [None]
  - ELECTROCARDIOGRAM ST SEGMENT ELEVATION [None]
